FAERS Safety Report 5748980-6 (Version None)
Quarter: 2008Q2

REPORT INFORMATION
  Report Type: 
  Country: None (occurrence: None)
  Receive Date: 20080527
  Receipt Date: 20080520
  Transmission Date: 20081010
  Serious: Yes (Hospitalization)
  Sender: FDA-Public Use
  Company Number: US-BRISTOL-MYERS SQUIBB COMPANY-14203954

PATIENT
  Sex: Male

DRUGS (2)
  1. PRINIVIL [Suspect]
     Indication: CORONARY ARTERY BYPASS
     Route: 048
     Dates: start: 20060223, end: 20060630
  2. METOPROLOL TARTRATE [Suspect]
     Indication: CORONARY ARTERY BYPASS
     Route: 065
     Dates: start: 20060317, end: 20060630

REACTIONS (3)
  - DIZZINESS [None]
  - HYPERKALAEMIA [None]
  - HYPOTENSION [None]
